FAERS Safety Report 9154545 (Version 1)
Quarter: 2013Q1

REPORT INFORMATION
  Report Type: Spontaneous
  Country: US (occurrence: US)
  Receive Date: 20130311
  Receipt Date: 20130311
  Transmission Date: 20140127
  Serious: No
  Sender: FDA-Public Use
  Company Number: US-ABBOTT-13P-163-1044664-00

PATIENT
  Age: 23 Year
  Sex: Female

DRUGS (2)
  1. LUPRON DEPOT [Suspect]
     Indication: ENDOMETRIOSIS
     Dates: start: 201210, end: 201301
  2. PAIN MEDICATION [Concomitant]
     Indication: PROCEDURAL PAIN

REACTIONS (2)
  - Hot flush [Recovered/Resolved]
  - Nausea [Recovered/Resolved]
